FAERS Safety Report 15609397 (Version 1)
Quarter: 2018Q4

REPORT INFORMATION
  Report Type: Spontaneous
  Country: US (occurrence: US)
  Receive Date: 20181112
  Receipt Date: 20181112
  Transmission Date: 20190205
  Serious: Yes (Hospitalization)
  Sender: FDA-Public Use
  Company Number: US-LUNDBECK-DKLU2056853

PATIENT
  Age: 7 Year
  Sex: Male

DRUGS (1)
  1. SABRIL [Suspect]
     Active Substance: VIGABATRIN
     Indication: SEIZURE
     Route: 048
     Dates: start: 201809

REACTIONS (7)
  - Affective disorder [Unknown]
  - Muscle twitching [Unknown]
  - Speech disorder [Unknown]
  - Seizure [Unknown]
  - Movement disorder [Unknown]
  - Agitation [Unknown]
  - Drooling [Unknown]

NARRATIVE: CASE EVENT DATE: 20180923
